FAERS Safety Report 5527381-X (Version None)
Quarter: 2007Q4

REPORT INFORMATION
  Report Type: 
  Country: None (occurrence: None)
  Receive Date: 20071123
  Receipt Date: 20071107
  Transmission Date: 20080405
  Serious: Yes (Other)
  Sender: FDA-Public Use
  Company Number: 2007S1006205

PATIENT
  Age: 17 Year
  Sex: Female

DRUGS (2)
  1. ISOTRETINOIN [Suspect]
     Dosage: 40 MG; EVERY OTHER DAY; ORAL, 80 MG; EVERY OTHER DAY; ORAL
     Route: 048
     Dates: start: 20070217, end: 20070606
  2. ISOTRETINOIN [Suspect]
     Dosage: 40 MG; EVERY OTHER DAY; ORAL, 80 MG; EVERY OTHER DAY; ORAL
     Route: 048
     Dates: start: 20070217, end: 20070606

REACTIONS (4)
  - DRUG DOSE OMISSION [None]
  - DRUG EXPOSURE DURING PREGNANCY [None]
  - PREGNANCY ON ORAL CONTRACEPTIVE [None]
  - TREATMENT NONCOMPLIANCE [None]
